FAERS Safety Report 16135078 (Version 2)
Quarter: 2019Q2

REPORT INFORMATION
  Report Type: Spontaneous
  Country: JP (occurrence: JP)
  Receive Date: 20190329
  Receipt Date: 20190422
  Transmission Date: 20190711
  Serious: Yes (Death, Other)
  Sender: FDA-Public Use
  Company Number: JP-GILEAD-2019-0398747

PATIENT
  Age: 59 Year
  Sex: Female
  Weight: 48.7 kg

DRUGS (26)
  1. LIVACT [AMINO ACIDS NOS] [Concomitant]
     Indication: HEPATIC ENCEPHALOPATHY
  2. HUSTAZOL [CLOPERASTINE FENDIZOATE] [Concomitant]
     Active Substance: CLOPERASTINE FENDIZOATE
     Indication: BRONCHIAL DISORDER
     Dosage: UNK
     Route: 048
     Dates: start: 20190212, end: 20190307
  3. LASIX [Concomitant]
     Active Substance: FUROSEMIDE
     Indication: ASCITES
     Dosage: UNK
     Route: 042
     Dates: start: 20190201, end: 20190306
  4. LIVACT [AMINO ACIDS NOS] [Concomitant]
     Indication: ASCITES
  5. FUROSEMIDE. [Concomitant]
     Active Substance: FUROSEMIDE
     Indication: ASCITES
     Dosage: UNK
     Route: 048
     Dates: start: 20190307, end: 20190318
  6. REMITCH [Concomitant]
     Active Substance: NALFURAFINE HYDROCHLORIDE
     Indication: PRURITUS
     Dosage: UNK
     Route: 048
     Dates: start: 20190117, end: 20190318
  7. HISHIPHAGENC [Concomitant]
     Indication: HEPATITIS C
     Dosage: UNK
     Route: 042
     Dates: start: 20190201, end: 20190322
  8. URSODEOXYCHOLIC ACID [Concomitant]
     Active Substance: URSODIOL
     Indication: HEPATITIS C
     Dosage: UNK
     Route: 048
     Dates: start: 20190117, end: 20190318
  9. L CARTIN [Concomitant]
     Active Substance: LEVOCARNITINE HYDROCHLORIDE
     Indication: HEPATITIS C
     Dosage: UNK
     Route: 048
     Dates: start: 20190126, end: 20190318
  10. SOLU-MEDROL [Concomitant]
     Active Substance: METHYLPREDNISOLONE SODIUM SUCCINATE
     Indication: PALLIATIVE CARE
     Dosage: UNK
     Route: 042
     Dates: start: 20190319, end: 20190322
  11. ASVERIN [RIBAVIRIN] [Concomitant]
     Indication: BRONCHIAL DISORDER
     Dosage: UNK
     Route: 048
     Dates: start: 20190212, end: 20190307
  12. AMINOLEBAN [Concomitant]
     Active Substance: AMINO ACIDS
     Indication: HEPATIC ENCEPHALOPATHY
     Dosage: UNK
     Route: 042
     Dates: start: 20190214, end: 20190322
  13. TAKECAB [Concomitant]
     Active Substance: VONOPRAZAN FUMURATE
     Indication: VARICES OESOPHAGEAL
     Dosage: UNK
     Route: 048
     Dates: start: 20190128, end: 20190318
  14. MONILAC [Concomitant]
     Active Substance: LACTULOSE
     Indication: HEPATIC ENCEPHALOPATHY
     Dosage: UNK
     Route: 065
     Dates: start: 20190117, end: 20190318
  15. SAMSCA [Concomitant]
     Active Substance: TOLVAPTAN
     Indication: ASCITES
     Dosage: UNK
     Route: 048
     Dates: start: 20190124, end: 20190318
  16. POLAPREZINC [Concomitant]
     Active Substance: POLAPREZINC
     Indication: GASTRITIS
     Dosage: UNK
     Route: 048
     Dates: start: 20190128, end: 20190318
  17. POLAPREZINC [Concomitant]
     Active Substance: POLAPREZINC
     Indication: FAECES DISCOLOURED
  18. PREDNISOLONE. [Concomitant]
     Active Substance: PREDNISOLONE
     Indication: PALLIATIVE CARE
     Dosage: UNK
     Route: 042
     Dates: start: 20190316, end: 20190318
  19. POTASSIUM CANRENOATE [Concomitant]
     Active Substance: CANRENOATE POTASSIUM
     Indication: ASCITES
     Dosage: UNK
     Route: 042
     Dates: start: 20190201, end: 20190306
  20. LIVACT [AMINO ACIDS NOS] [Concomitant]
     Indication: HYPOALBUMINAEMIA
     Dosage: UNK
     Route: 048
     Dates: start: 20190303, end: 20190318
  21. ALBUMIN [Concomitant]
     Active Substance: ALBUMIN HUMAN
     Indication: ASCITES
     Dosage: UNK
     Route: 042
     Dates: start: 20190302, end: 20190304
  22. ALBUMIN [Concomitant]
     Active Substance: ALBUMIN HUMAN
     Indication: OEDEMA
  23. EPCLUSA [Suspect]
     Active Substance: SOFOSBUVIR\VELPATASVIR
     Indication: HEPATIC CIRRHOSIS
     Dosage: 1 DOSAGE FORM, QD
     Route: 048
     Dates: start: 20190305, end: 20190318
  24. SPIRONOLACTONE. [Concomitant]
     Active Substance: SPIRONOLACTONE
     Indication: ASCITES
     Dosage: UNK
     Route: 048
     Dates: start: 20190307, end: 20190318
  25. PANTETHINE [Concomitant]
     Active Substance: PANTETHINE
     Indication: CONSTIPATION
     Dosage: UNK
     Route: 048
     Dates: start: 20190117, end: 20190318
  26. MAGNESIUM OXIDE. [Concomitant]
     Active Substance: MAGNESIUM OXIDE
     Indication: CONSTIPATION
     Dosage: UNK
     Route: 048
     Dates: start: 20190117, end: 20190318

REACTIONS (1)
  - Hepatic failure [Fatal]
